FAERS Safety Report 18506579 (Version 1)
Quarter: 2020Q4

REPORT INFORMATION
  Report Type: Spontaneous
  Country: US (occurrence: US)
  Receive Date: 20201113
  Receipt Date: 20201113
  Transmission Date: 20210114
  Serious: Yes (Hospitalization)
  Sender: FDA-Public Use
  Company Number: None

PATIENT
  Age: 76 Year
  Sex: Female
  Weight: 89.55 kg

DRUGS (13)
  1. BRAFTOVI [Suspect]
     Active Substance: ENCORAFENIB
     Indication: NEOPLASM MALIGNANT
     Route: 048
     Dates: start: 20200916
  2. TURMERIC [Concomitant]
     Active Substance: HERBALS\TURMERIC
  3. SENOKOT-S [Concomitant]
     Active Substance: DOCUSATE SODIUM\SENNOSIDES
  4. CLOBETASOL [Concomitant]
     Active Substance: CLOBETASOL
  5. VASOTEC [Concomitant]
     Active Substance: ENALAPRIL MALEATE
  6. NAPROXEN. [Concomitant]
     Active Substance: NAPROXEN
  7. OMEPRAZOLE. [Concomitant]
     Active Substance: OMEPRAZOLE
  8. MEKTOVI [Suspect]
     Active Substance: BINIMETINIB
     Indication: SQUAMOUS CELL CARCINOMA OF SKIN
     Route: 048
     Dates: start: 20200916
  9. ASPIRIN. [Concomitant]
     Active Substance: ASPIRIN
  10. MULTIVITAMIN [Concomitant]
     Active Substance: VITAMINS
  11. OXYCODONE [Concomitant]
     Active Substance: OXYCODONE
  12. ARTIFICIAL TEARS [Concomitant]
     Active Substance: GLYCERIN\HYPROMELLOSES\POLYETHYLENE GLYCOL 400
  13. PREMARIN [Concomitant]
     Active Substance: ESTROGENS, CONJUGATED

REACTIONS (5)
  - Asthenia [None]
  - Decreased appetite [None]
  - Pyrexia [None]
  - Infusion related reaction [None]
  - Diarrhoea [None]

NARRATIVE: CASE EVENT DATE: 20201113
